FAERS Safety Report 5993133-X (Version None)
Quarter: 2008Q4

REPORT INFORMATION
  Report Type: 
  Country: None (occurrence: None)
  Receive Date: 20081212
  Receipt Date: 20081127
  Transmission Date: 20090506
  Serious: Yes (Hospitalization)
  Sender: FDA-Public Use
  Company Number: DE-CELGENEUS-AZADE200800368

PATIENT
  Age: 49 Year
  Sex: Female
  Weight: 120 kg

DRUGS (2)
  1. VIDAZA [Suspect]
     Indication: ACUTE MYELOID LEUKAEMIA
     Route: 058
     Dates: start: 20071228
  2. PERINDOPRIL PLUS INDAPAMID [Concomitant]
     Indication: DRUG USE FOR UNKNOWN INDICATION
     Route: 065

REACTIONS (2)
  - BRONCHOPULMONARY ASPERGILLOSIS [None]
  - RESPIRATORY FAILURE [None]
